FAERS Safety Report 10856184 (Version 1)
Quarter: 2015Q1

REPORT INFORMATION
  Report Type: Spontaneous
  Country: FR (occurrence: FR)
  Receive Date: 20150223
  Receipt Date: 20150223
  Transmission Date: 20150721
  Serious: Yes (Other)
  Sender: FDA-Public Use
  Company Number: FR-TEVA-542389ISR

PATIENT
  Age: 53 Year
  Sex: Female

DRUGS (9)
  1. COPAXONE [Suspect]
     Active Substance: GLATIRAMER ACETATE
     Dosage: COPAXONE 20 MG/ML WITH AUTOJECT AT 10 MM, FOR 8 YEARS
     Route: 058
  2. TEMESTA 1MG [Concomitant]
     Active Substance: LORAZEPAM
     Dosage: AT BEDTIME
  3. PARIET [Concomitant]
     Active Substance: RABEPRAZOLE SODIUM
     Dosage: IN THE MORNING
  4. DAFLON [Concomitant]
     Active Substance: DIOSMIN\HESPERIDIN
     Dosage: 1 IN THE MORNING AND 1 AT NIGHT
  5. ATARAX [Concomitant]
     Active Substance: HYDROXYZINE\HYDROXYZINE HYDROCHLORIDE
     Dosage: 3 TIMES PER DAY (MORNING, NOON AND NIGHT)
  6. LEVOTHYROX 50 MICROGRAMS [Concomitant]
     Dosage: IN THE MORNING FASTING
  7. ANTADYS 100 MG [Concomitant]
     Dosage: IN THE MORNING, NOON AND EVENING
  8. CYMBALTA [Concomitant]
     Active Substance: DULOXETINE HYDROCHLORIDE
     Dosage: 90 MG AT NIGHT
  9. DAFALGAN [Concomitant]
     Active Substance: ACETAMINOPHEN
     Dosage: 3 TIMES PER DAY (MORNING, NOON AND NIGHT)

REACTIONS (22)
  - Nausea [Unknown]
  - Bronchitis [Unknown]
  - Injection site erythema [Recovered/Resolved]
  - Pain [Recovered/Resolved]
  - Blindness transient [Recovered/Resolved]
  - Haemoptysis [Unknown]
  - Injection site haemorrhage [Unknown]
  - Dyspepsia [Not Recovered/Not Resolved]
  - Injection site mass [Recovered/Resolved]
  - Fatigue [Unknown]
  - Injection site pain [Recovered/Resolved]
  - Respiratory tract haemorrhage [Unknown]
  - Sinusitis [Unknown]
  - Dizziness [Unknown]
  - Injection site swelling [Recovered/Resolved]
  - Mobility decreased [Unknown]
  - Peripheral swelling [Unknown]
  - Burning sensation [Unknown]
  - Gastroenteritis [Unknown]
  - Injection site haematoma [Recovered/Resolved]
  - Vomiting [Unknown]
  - Oropharyngeal pain [Unknown]

NARRATIVE: CASE EVENT DATE: 2014
